FAERS Safety Report 18502264 (Version 3)
Quarter: 2021Q2

REPORT INFORMATION
  Report Type: Spontaneous
  Country: CA (occurrence: CA)
  Receive Date: 20201113
  Receipt Date: 20210614
  Transmission Date: 20210717
  Serious: Yes (Other)
  Sender: FDA-Public Use
  Company Number: CA-SAMSUNG BIOEPIS-SB-2020-11632

PATIENT
  Age: 67 Year
  Sex: Male
  Weight: 79 kg

DRUGS (16)
  1. DIPHTHERIA TOXOID ADSORBED/PERTUSSIS VACCINE ACELLULAR 5? COMPONENT/TE [Concomitant]
     Indication: PRODUCT USED FOR UNKNOWN INDICATION
     Dosage: UNKNOWN
     Route: 065
  2. HAEMOPHILUS B CONJUGATE VACCINE NOS [Concomitant]
     Active Substance: HAEMOPHILUS B CONJUGATE VACCINE
     Indication: PRODUCT USED FOR UNKNOWN INDICATION
     Dosage: UNKNOWN
     Route: 065
  3. INFLIXIMAB [Suspect]
     Active Substance: INFLIXIMAB
     Route: 042
  4. DESOXIMETASONE. [Concomitant]
     Active Substance: DESOXIMETASONE
     Indication: PRODUCT USED FOR UNKNOWN INDICATION
     Dosage: UNKNOWN
     Route: 065
  5. MENINGOCOCCAL POLYSACCHARIDE VACCINE A NOS [Concomitant]
     Active Substance: MENINGOCOCCAL POLYSACCHARIDE VACCINE A\NEISSERIA MENINGITIDIS GROUP A CAPSULAR POLYSACCHARIDE ANTIGEN
     Dosage: UNKNOWN
     Route: 065
  6. MENINGOCOCCAL VACCINE A/C/Y/W CONJ (TET TOX) [Concomitant]
     Indication: PRODUCT USED FOR UNKNOWN INDICATION
     Dosage: UNKNOWN
     Route: 065
  7. HAEMOPHILUS B CONJUGATE VACCINE NOS [Concomitant]
     Active Substance: HAEMOPHILUS B CONJUGATE VACCINE
     Dosage: UNKNOWN
     Route: 065
  8. MENINGOCOCCAL VACCINE A/C/Y/W CONJ (TET TOX) [Concomitant]
     Dosage: UNKNOWN
     Route: 065
  9. PREVNAR 13 [Concomitant]
     Active Substance: PNEUMOCOCCAL 13-VALENT CONJUGATE VACCINE
     Dosage: UNKNOWN, SUSPENSION INTRAMUSCULAR
     Route: 065
  10. INFLIXIMAB [Suspect]
     Active Substance: INFLIXIMAB
     Indication: CROHN^S DISEASE
     Route: 042
  11. PREDNISONE. [Concomitant]
     Active Substance: PREDNISONE
     Indication: PRODUCT USED FOR UNKNOWN INDICATION
     Dosage: UNKNOWN
     Route: 065
  12. METHOTREXATE. [Concomitant]
     Active Substance: METHOTREXATE
     Indication: PRODUCT USED FOR UNKNOWN INDICATION
     Route: 065
  13. INFLIXIMAB [Suspect]
     Active Substance: INFLIXIMAB
     Indication: COLITIS ULCERATIVE
     Route: 042
  14. MENINGOCOCCAL POLYSACCHARIDE VACCINE A NOS [Concomitant]
     Active Substance: MENINGOCOCCAL POLYSACCHARIDE VACCINE A\NEISSERIA MENINGITIDIS GROUP A CAPSULAR POLYSACCHARIDE ANTIGEN
     Indication: PRODUCT USED FOR UNKNOWN INDICATION
     Dosage: UNKNOWN
     Route: 065
  15. PREVNAR 13 [Concomitant]
     Active Substance: PNEUMOCOCCAL 13-VALENT CONJUGATE VACCINE
     Indication: PRODUCT USED FOR UNKNOWN INDICATION
     Dosage: UNKNOWN, SUSPENSION INTRAMUSCULAR
     Route: 065
  16. DIPHTHERIA TOXOID ADSORBED/PERTUSSIS VACCINE ACELLULAR 5? COMPONENT/TE [Concomitant]
     Dosage: UNKNOWN
     Route: 065

REACTIONS (11)
  - Weight increased [Unknown]
  - Clostridium difficile infection [Unknown]
  - Blood pressure increased [Unknown]
  - Intentional product use issue [Unknown]
  - Blood pressure fluctuation [Unknown]
  - Condition aggravated [Unknown]
  - Product use issue [Unknown]
  - Off label use [Unknown]
  - Therapeutic product effect incomplete [Unknown]
  - Inappropriate schedule of product administration [Unknown]
  - Heart rate increased [Unknown]
